FAERS Safety Report 24903203 (Version 1)
Quarter: 2025Q1

REPORT INFORMATION
  Report Type: Spontaneous
  Country: US (occurrence: US)
  Receive Date: 20250130
  Receipt Date: 20250130
  Transmission Date: 20250408
  Serious: No
  Sender: SANDOZ
  Company Number: US-SANDOZ-SDZ2025US005309

PATIENT
  Sex: Female

DRUGS (5)
  1. AMIKACIN [Suspect]
     Active Substance: AMIKACIN
     Indication: Mycobacterium abscessus infection
     Route: 065
     Dates: start: 202407, end: 202409
  2. CEFOXITIN [Suspect]
     Active Substance: CEFOXITIN SODIUM
     Indication: Mycobacterium abscessus infection
     Route: 065
     Dates: start: 202407, end: 202409
  3. CEFOXITIN [Suspect]
     Active Substance: CEFOXITIN SODIUM
     Route: 065
  4. OMADACYCLINE [Suspect]
     Active Substance: OMADACYCLINE
     Indication: Mycobacterium abscessus infection
     Route: 065
  5. TIGECYCLINE [Suspect]
     Active Substance: TIGECYCLINE
     Indication: Mycobacterium abscessus infection
     Route: 065
     Dates: start: 202407, end: 202409

REACTIONS (1)
  - Skin induration [Unknown]
